FAERS Safety Report 23792167 (Version 1)
Quarter: 2024Q2

REPORT INFORMATION
  Report Type: Spontaneous
  Country: US (occurrence: US)
  Receive Date: 20240429
  Receipt Date: 20240429
  Transmission Date: 20240716
  Serious: Yes (Life-Threatening, Hospitalization)
  Sender: FDA-Public Use
  Company Number: US-APOTEX-2024AP005165

PATIENT
  Age: 62 Year
  Sex: Male

DRUGS (2)
  1. ATORVASTATIN [Interacting]
     Active Substance: ATORVASTATIN
     Indication: Hyperlipidaemia
     Dosage: 80 MILLIGRAM, QD
     Route: 065
  2. COBICISTAT\ELVITEGRAVIR\EMTRICITABINE\TENOFOVIR [Interacting]
     Active Substance: COBICISTAT\ELVITEGRAVIR\EMTRICITABINE\TENOFOVIR
     Indication: HIV infection
     Dosage: UNK
     Route: 065

REACTIONS (2)
  - Myositis [Recovering/Resolving]
  - Drug interaction [Unknown]
